FAERS Safety Report 7023503-2 (Version None)
Quarter: 2010Q3

REPORT INFORMATION
  Report Type: 
  Country: None (occurrence: None)
  Receive Date: 20100929
  Receipt Date: 20100929
  Transmission Date: 20110219
  Serious: Yes (Death)
  Sender: FDA-Public Use
  Company Number: None

PATIENT
  Age: 68 Year
  Sex: Male
  Weight: 113 kg

DRUGS (2)
  1. CABAZITAXEL 40MG SANOFI-AVENTIS [Suspect]
     Indication: PROSTATE CANCER
     Dosage: 56MG ONCE IV DRIP
     Route: 041
     Dates: start: 20100727, end: 20100727
  2. PEGFILIGRASTIM INJECTION [Concomitant]

REACTIONS (7)
  - BLOOD PRESSURE SYSTOLIC DECREASED [None]
  - DEHYDRATION [None]
  - LETHARGY [None]
  - PANCYTOPENIA [None]
  - PNEUMONIA [None]
  - SEPSIS [None]
  - URINARY TRACT INFECTION [None]
